FAERS Safety Report 4530691-6 (Version None)
Quarter: 2004Q4

REPORT INFORMATION
  Report Type: 
  Country: None (occurrence: None)
  Receive Date: 20041217
  Receipt Date: 20041209
  Transmission Date: 20050328
  Serious: Yes (Hospitalization)
  Sender: FDA-Public Use
  Company Number: BR-GLAXOSMITHKLINE-A0536928A

PATIENT
  Age: 81 Year
  Sex: Female
  Weight: 60 kg

DRUGS (7)
  1. DIGOXIN [Suspect]
     Dosage: .25MG PER DAY
     Route: 048
     Dates: start: 20040910, end: 20041110
  2. CAPTOPRIL [Concomitant]
     Dosage: 12.5MG THREE TIMES PER DAY
     Route: 048
  3. DIAMICRON [Concomitant]
  4. MONOCORDIL [Concomitant]
  5. SUSTRATE [Concomitant]
     Route: 048
  6. SERTRALINE [Concomitant]
  7. LASIX [Concomitant]
     Route: 048

REACTIONS (4)
  - AGITATION [None]
  - ERYTHEMA [None]
  - FEELING HOT [None]
  - VOMITING [None]
